FAERS Safety Report 21946082 (Version 1)
Quarter: 2023Q1

REPORT INFORMATION
  Report Type: Report from Study
  Country: US (occurrence: US)
  Receive Date: 20230202
  Receipt Date: 20230202
  Transmission Date: 20230417
  Serious: Yes (Hospitalization, Other)
  Sender: FDA-Public Use
  Company Number: US-TAKEDA-US201936772

PATIENT
  Age: 64 Year
  Sex: Male
  Weight: 56.236 kg

DRUGS (10)
  1. TEDUGLUTIDE [Suspect]
     Active Substance: TEDUGLUTIDE
     Indication: Short-bowel syndrome
     Dosage: UNK
     Route: 042
  2. TEDUGLUTIDE [Suspect]
     Active Substance: TEDUGLUTIDE
     Indication: Short-bowel syndrome
     Dosage: UNK
     Route: 042
  3. TEDUGLUTIDE [Suspect]
     Active Substance: TEDUGLUTIDE
     Indication: Short-bowel syndrome
     Dosage: UNK
     Route: 042
  4. TEDUGLUTIDE [Suspect]
     Active Substance: TEDUGLUTIDE
     Indication: Short-bowel syndrome
     Dosage: UNK
     Route: 042
  5. TERIPARATIDE [Concomitant]
     Active Substance: TERIPARATIDE
     Indication: Osteoporosis
     Dosage: 1 INTERNATIONAL UNIT, QD
     Route: 058
     Dates: start: 20150406
  6. ATROPINE\DIPHENOXYLATE [Concomitant]
     Active Substance: ATROPINE\DIPHENOXYLATE
     Indication: Short-bowel syndrome
     Dosage: UNK
  7. AMOXICILLIN\CLAVULANIC ACID [Concomitant]
     Active Substance: AMOXICILLIN\CLAVULANIC ACID
     Indication: Bacterial infection
     Dosage: UNK
     Route: 042
  8. AMOXICILLIN\CLAVULANIC ACID [Concomitant]
     Active Substance: AMOXICILLIN\CLAVULANIC ACID
     Dosage: 125 MILLIGRAM, BID
     Route: 048
     Dates: start: 20150905
  9. POTASSIUM CHLORIDE [Concomitant]
     Active Substance: POTASSIUM CHLORIDE
     Indication: Short-bowel syndrome
     Dosage: UNK UNK, QD
     Route: 048
     Dates: start: 20121203
  10. VANCOMYCIN [Concomitant]
     Active Substance: VANCOMYCIN
     Indication: Sepsis
     Dosage: 1 GRAM, Q12H
     Route: 042

REACTIONS (1)
  - Device related sepsis [Recovered/Resolved]

NARRATIVE: CASE EVENT DATE: 20150905
